FAERS Safety Report 17794157 (Version 8)
Quarter: 2020Q4

REPORT INFORMATION
  Report Type: Report from Study
  Country: PL (occurrence: PL)
  Receive Date: 20200515
  Receipt Date: 20201126
  Transmission Date: 20210113
  Serious: Yes (Hospitalization)
  Sender: FDA-Public Use
  Company Number: PL-ROCHE-2597470

PATIENT
  Age: 23 Year
  Sex: Male
  Weight: 84 kg

DRUGS (19)
  1. OCRELIZUMAB. [Suspect]
     Active Substance: OCRELIZUMAB
     Indication: RELAPSING-REMITTING MULTIPLE SCLEROSIS
     Dosage: DATE OF MOST RECENT DOSE OF OCRELIZUMAB PRIOR TO THIS EVENT ONSET: 21/NOV/2019?NEXT DOSE ON 09/AUG/2
     Route: 042
     Dates: start: 20170727, end: 20170727
  2. ZYRTEC (POLAND) [Concomitant]
     Indication: PREMEDICATION
     Route: 048
     Dates: start: 20170727, end: 20170727
  3. METHYLPREDNISOLONE. [Suspect]
     Active Substance: METHYLPREDNISOLONE
     Route: 042
     Dates: start: 20180118, end: 20180118
  4. ZYRTEC (POLAND) [Concomitant]
     Route: 048
     Dates: start: 20180710, end: 20180710
  5. METHYLPREDNISOLONE. [Suspect]
     Active Substance: METHYLPREDNISOLONE
     Indication: PREMEDICATION
     Route: 042
     Dates: start: 20170727, end: 20170727
  6. ZYRTEC (POLAND) [Concomitant]
     Route: 048
     Dates: start: 20200721, end: 20200721
  7. METHYLPREDNISOLONE. [Suspect]
     Active Substance: METHYLPREDNISOLONE
     Route: 042
     Dates: start: 20170809, end: 20170809
  8. METHYLPREDNISOLONE. [Suspect]
     Active Substance: METHYLPREDNISOLONE
     Route: 042
     Dates: start: 20180710, end: 20180710
  9. METHYLPREDNISOLONE. [Suspect]
     Active Substance: METHYLPREDNISOLONE
     Route: 042
     Dates: start: 20181212, end: 20181212
  10. METHYLPREDNISOLONE. [Suspect]
     Active Substance: METHYLPREDNISOLONE
     Route: 042
     Dates: start: 20191121, end: 20191121
  11. ZYRTEC (POLAND) [Concomitant]
     Route: 048
     Dates: start: 20170809, end: 20170809
  12. ZYRTEC (POLAND) [Concomitant]
     Route: 048
     Dates: start: 20190528, end: 20190528
  13. VITAMIN D3 [Concomitant]
     Active Substance: CHOLECALCIFEROL
     Route: 048
     Dates: start: 20170324
  14. CETIX (POLAND) [Concomitant]
     Indication: EPIDIDYMITIS
     Route: 048
     Dates: start: 20200508, end: 20200514
  15. METHYLPREDNISOLONE. [Suspect]
     Active Substance: METHYLPREDNISOLONE
     Route: 042
     Dates: start: 20190528, end: 20190528
  16. ZYRTEC (POLAND) [Concomitant]
     Route: 048
     Dates: start: 20181212, end: 20181212
  17. METHYLPREDNISOLONE. [Suspect]
     Active Substance: METHYLPREDNISOLONE
     Route: 042
     Dates: start: 20200721, end: 20200721
  18. ZYRTEC (POLAND) [Concomitant]
     Route: 048
     Dates: start: 20180118, end: 20180118
  19. ZYRTEC (POLAND) [Concomitant]
     Route: 048
     Dates: start: 20191121, end: 20191121

REACTIONS (1)
  - Epididymitis [Recovered/Resolved with Sequelae]

NARRATIVE: CASE EVENT DATE: 20200430
